FAERS Safety Report 9356988 (Version 1)
Quarter: 2013Q2

REPORT INFORMATION
  Report Type: Spontaneous
  Country: US (occurrence: US)
  Receive Date: 20130620
  Receipt Date: 20130620
  Transmission Date: 20140414
  Serious: No
  Sender: FDA-Public Use
  Company Number: US-009507513-1306USA008588

PATIENT
  Sex: Female

DRUGS (2)
  1. JANUMET [Suspect]
  2. JANUVIA [Suspect]

REACTIONS (1)
  - Nasopharyngitis [Unknown]
